FAERS Safety Report 16290074 (Version 2)
Quarter: 2020Q1

REPORT INFORMATION
  Report Type: Report from Study
  Country: JP (occurrence: JP)
  Receive Date: 20190509
  Receipt Date: 20200131
  Transmission Date: 20200409
  Serious: Yes (Other)
  Sender: FDA-Public Use
  Company Number: JP-ROCHE-2311381

PATIENT

DRUGS (2)
  1. TAS 102 [Suspect]
     Active Substance: TIPIRACIL HYDROCHLORIDE\TRIFLURIDINE
     Indication: COLORECTAL CANCER METASTATIC
     Dosage: ON DAYS 1-5 AND 8-12 IN A 28-DAY CYCLE
     Route: 065
  2. BEVACIZUMAB. [Suspect]
     Active Substance: BEVACIZUMAB
     Indication: COLORECTAL CANCER METASTATIC
     Dosage: DAYS 1 AND 15
     Route: 065

REACTIONS (13)
  - Proteinuria [Unknown]
  - Diarrhoea [Unknown]
  - Leukopenia [Unknown]
  - Febrile neutropenia [Unknown]
  - Vomiting [Unknown]
  - Neutropenia [Unknown]
  - Gastrointestinal perforation [Unknown]
  - Thrombocytopenia [Unknown]
  - Anaemia [Unknown]
  - Nausea [Unknown]
  - Fatigue [Unknown]
  - Hypertension [Unknown]
  - Decreased appetite [Unknown]
